FAERS Safety Report 7875006-0 (Version None)
Quarter: 2011Q4

REPORT INFORMATION
  Report Type: 
  Country: None (occurrence: None)
  Receive Date: 20111031
  Receipt Date: 20111026
  Transmission Date: 20120403
  Serious: Yes (Hospitalization)
  Sender: FDA-Public Use
  Company Number: US-B.I. PHARMACEUTICALS,INC./RIDGEFIELD-2011-BP-20603BP

PATIENT
  Age: 74 Year
  Sex: Female
  Weight: 76.2 kg

DRUGS (6)
  1. ASPIRIN [Concomitant]
     Dosage: 81 MG
  2. PRADAXA [Suspect]
     Indication: ATRIAL FIBRILLATION
     Dosage: 150 MG
     Route: 048
     Dates: end: 20110817
  3. LIPITOR [Concomitant]
     Dosage: 10 MG
  4. POTASSIUM CHLORIDE [Concomitant]
     Dosage: 20 MEQ
  5. LASIX [Concomitant]
     Dosage: 40 MG
  6. AMIODARONE HCL [Concomitant]
     Dosage: 200 MG

REACTIONS (4)
  - TACHYCARDIA [None]
  - DIZZINESS [None]
  - HAEMOGLOBIN DECREASED [None]
  - GASTROINTESTINAL HAEMORRHAGE [None]
